FAERS Safety Report 13021397 (Version 1)
Quarter: 2016Q4

REPORT INFORMATION
  Report Type: Spontaneous
  Country: GR (occurrence: GR)
  Receive Date: 20161213
  Receipt Date: 20161213
  Transmission Date: 20170207
  Serious: Yes (Other)
  Sender: FDA-Public Use
  Company Number: GR-ACCORD-046397

PATIENT
  Age: 13 Year
  Sex: Male

DRUGS (8)
  1. DEXAMETHASONE. [Concomitant]
     Active Substance: DEXAMETHASONE
     Indication: BURKITT^S LYMPHOMA
  2. IFOSFAMIDE. [Concomitant]
     Active Substance: IFOSFAMIDE
     Indication: BURKITT^S LYMPHOMA
  3. DOXORUBICIN [Concomitant]
     Active Substance: DOXORUBICIN
     Indication: BURKITT^S LYMPHOMA
  4. HYDROCORTISONE. [Concomitant]
     Active Substance: HYDROCORTISONE
     Indication: BURKITT^S LYMPHOMA
     Route: 037
  5. CYTARABINE/CYTARABINE HYDROCHLORIDE/CYTARABINE OCFOSFATE [Concomitant]
     Indication: BURKITT^S LYMPHOMA
     Dosage: ALSO RECEIVED CYTARABINE WITHOUT INTRATHECAL ROUTE IN SAME THERAPY
     Route: 037
  6. METHOTREXATE. [Suspect]
     Active Substance: METHOTREXATE
     Indication: BURKITT^S LYMPHOMA
     Route: 037
  7. TENIPOSIDE. [Concomitant]
     Active Substance: TENIPOSIDE
     Indication: BURKITT^S LYMPHOMA
  8. CYCLOPHOSPHAMIDE/CYCLOPHOSPHAMIDE MONOHYDRATE [Concomitant]
     Indication: BURKITT^S LYMPHOMA

REACTIONS (1)
  - Posterior reversible encephalopathy syndrome [Recovered/Resolved]
